FAERS Safety Report 7107524-7 (Version None)
Quarter: 2010Q4

REPORT INFORMATION
  Report Type: 
  Country: None (occurrence: None)
  Receive Date: 20101117
  Receipt Date: 20101104
  Transmission Date: 20110411
  Serious: No
  Sender: FDA-Public Use
  Company Number: US-JNJFOC-20091004996

PATIENT
  Sex: Male
  Weight: 86.18 kg

DRUGS (14)
  1. DURAGESIC-100 [Suspect]
     Indication: NEUROPATHY PERIPHERAL
     Route: 062
  2. DURAGESIC-100 [Suspect]
     Indication: NEURALGIA
     Dosage: 150MCG/ 100MCG+50MCG/ 1 EVERY 48 HOURS/ TD
     Route: 062
  3. DURAGESIC-100 [Suspect]
     Dosage: 150MCG/ 100MCG 50MCG/ 1 EVERY 48 HOURS/ TD
     Route: 062
  4. OXYCODONE HCL [Concomitant]
     Indication: BREAKTHROUGH PAIN
     Route: 048
  5. LANTUS [Concomitant]
     Indication: DIABETES MELLITUS
     Dosage: 15 UNITS TWICE DAILY
     Route: 058
  6. ACTOS [Concomitant]
     Indication: DIABETES MELLITUS
     Route: 048
  7. NOVOLOG [Concomitant]
     Indication: DIABETES MELLITUS
     Route: 058
  8. ANDROGEL [Concomitant]
     Indication: BLOOD TESTOSTERONE ABNORMAL
     Route: 061
  9. ANDROGEL [Concomitant]
     Indication: HORMONE REPLACEMENT THERAPY
     Route: 061
  10. LEXAPRO [Concomitant]
     Indication: DEPRESSION
     Route: 048
  11. CYMBALTA [Concomitant]
     Indication: DEPRESSION
     Route: 048
  12. MIRAPEX [Concomitant]
     Indication: PRODUCT USED FOR UNKNOWN INDICATION
     Route: 048
  13. LEVOTHYROXINE [Concomitant]
     Indication: THYROID DISORDER
     Route: 048
  14. METFORMIN [Concomitant]
     Indication: DIABETES MELLITUS
     Route: 048

REACTIONS (4)
  - CONSTIPATION [None]
  - DRUG EFFECT DECREASED [None]
  - PAIN [None]
  - WRONG TECHNIQUE IN DRUG USAGE PROCESS [None]
